FAERS Safety Report 8437386 (Version 2)
Quarter: 2016Q1

REPORT INFORMATION
  Report Type: Spontaneous
  Country: FR (occurrence: FR)
  Receive Date: 20120302
  Receipt Date: 20160215
  Transmission Date: 20160526
  Serious: Yes (Disabling, Other)
  Sender: FDA-Public Use
  Company Number: FR-BRISTOL-MYERS SQUIBB COMPANY-16418394

PATIENT
  Age: 0 Day
  Sex: Male

DRUGS (2)
  1. GLUCOPHAGE [Suspect]
     Active Substance: METFORMIN HYDROCHLORIDE
     Indication: PRODUCT USED FOR UNKNOWN INDICATION
     Dosage: UNK
     Route: 064
     Dates: start: 200803
  2. MEDIATOR [Suspect]
     Active Substance: BENFLUOREX
     Indication: PRODUCT USED FOR UNKNOWN INDICATION
     Dosage: UNK
     Route: 064
     Dates: start: 200803

REACTIONS (7)
  - Cardiac disorder [Unknown]
  - Cardiac murmur [Unknown]
  - Mobility decreased [Unknown]
  - Premature baby [Unknown]
  - Autism spectrum disorder [Not Recovered/Not Resolved]
  - Foetal arrhythmia [Unknown]
  - Foetal exposure during pregnancy [Unknown]

NARRATIVE: CASE EVENT DATE: 20080513
